FAERS Safety Report 11512354 (Version 1)
Quarter: 2015Q3

REPORT INFORMATION
  Report Type: Spontaneous
  Country: IT (occurrence: IT)
  Receive Date: 20150916
  Receipt Date: 20150916
  Transmission Date: 20151125
  Serious: Yes (Hospitalization)
  Sender: FDA-Public Use
  Company Number: IT-TEVA-498972ISR

PATIENT
  Age: 80 Year
  Sex: Male

DRUGS (5)
  1. ALFUZOSINA RATIOPHARM 10 MG [Suspect]
     Active Substance: ALFUZOSIN HYDROCHLORIDE
     Indication: BENIGN PROSTATIC HYPERPLASIA
     Route: 048
     Dates: start: 20130101, end: 20130915
  2. LISINOPRIL/IDROCLOROTIAZIDE [Concomitant]
  3. ESOMEPRAZOLO SODICO [Concomitant]
  4. SERTRALINA CLORIDRATO [Concomitant]
     Active Substance: SERTRALINE HYDROCHLORIDE
  5. METFORMIN [Concomitant]
     Active Substance: METFORMIN HYDROCHLORIDE

REACTIONS (2)
  - Syncope [Recovering/Resolving]
  - Urinary incontinence [Recovering/Resolving]

NARRATIVE: CASE EVENT DATE: 20130915
